FAERS Safety Report 10022054 (Version 1)
Quarter: 2013Q4

REPORT INFORMATION
  Report Type: Spontaneous
  Country: GB (occurrence: None)
  Receive Date: 20131211
  Receipt Date: 20131211
  Transmission Date: 20140711
  Serious: Yes (Other)
  Sender: FDA-Public Use
  Company Number: AUR-APL-2013-07007

PATIENT
  Age: 79 Year
  Sex: Female
  Weight: 63.5 kg

DRUGS (3)
  1. MIRTAZAPINE [Suspect]
     Indication: INSOMNIA
     Route: 048
     Dates: start: 20130805, end: 20130807
  2. DOSULEPIN (DOSULEPIN) [Concomitant]
  3. NITRAZEPAM (NITRAZEPAM) [Concomitant]

REACTIONS (4)
  - Off label use [None]
  - Suicidal ideation [None]
  - Muscle spasms [None]
  - Headache [None]
